FAERS Safety Report 8404926 (Version 5)
Quarter: 2013Q4

REPORT INFORMATION
  Report Type: Spontaneous
  Country: US (occurrence: None)
  Receive Date: 20120214
  Receipt Date: 20131226
  Transmission Date: 20140711
  Serious: Yes (Other)
  Sender: FDA-Public Use
  Company Number: PHEH2012US001849

PATIENT
  Age: 83 Year
  Sex: Female
  Weight: 77.1 kg

DRUGS (14)
  1. TASIGNA [Suspect]
     Indication: CHRONIC MYELOID LEUKAEMIA
     Dosage: 150 MG, BID, ORAL
     Route: 048
     Dates: start: 20111114, end: 20111115
  2. CALTRATE (CALCIUM CARBONATE) [Concomitant]
  3. SPIRONOLACTONE ISPIRONOLACTONE) [Concomitant]
  4. ALLOPURINOL (ALLOPURINOL) [Concomitant]
  5. HYDRALAZINE HYDROCHLORIDE (HYDRALAZINE HYDROCHLORIDE) [Concomitant]
  6. TRAVATAN (TRAVAPROST) [Concomitant]
  7. ISOSORBIDE MONONITRATE (ISOSORBIDE MONONITRATE) [Concomitant]
  8. COUMADIN (WARFARIN SODIUM) [Concomitant]
  9. LASIX (FUROSEMIDE) [Concomitant]
  10. TOPROL XL (METOPROLOL SUCCINATE) [Concomitant]
  11. DIGOXIN (DIGOXIN) [Concomitant]
  12. VERAPAMIL (VERAPAMIL) [Concomitant]
  13. OMGA 3 (FISH OIL) [Concomitant]
  14. B COMPLEX (NICOTINAMIDE, PYRIDOXINE HYDROCHLORIDE, RIBOFLAVIN, THIAMINE HYDROCHLORIDE) [Concomitant]

REACTIONS (1)
  - Abdominal pain upper [None]
